FAERS Safety Report 10620553 (Version 1)
Quarter: 2014Q4

REPORT INFORMATION
  Report Type: Spontaneous
  Country: US (occurrence: US)
  Receive Date: 20141202
  Receipt Date: 20141202
  Transmission Date: 20150529
  Serious: Yes (Hospitalization, Other)
  Sender: FDA-Public Use
  Company Number: US-GLAXOSMITHKLINE-US2014GSK029777

PATIENT
  Age: 52 Year
  Sex: Male

DRUGS (7)
  1. ADVAIR DISKUS [Suspect]
     Active Substance: FLUTICASONE PROPIONATE\SALMETEROL XINAFOATE
     Indication: CHRONIC OBSTRUCTIVE PULMONARY DISEASE
     Dosage: 1-2 PUFFS, QD
     Route: 055
     Dates: start: 2009, end: 2014
  2. ADVAIR DISKUS [Suspect]
     Active Substance: FLUTICASONE PROPIONATE\SALMETEROL XINAFOATE
     Indication: WHEEZING
  3. SIMVASTATIN. [Concomitant]
     Active Substance: SIMVASTATIN
  4. CAPTOPRIL. [Concomitant]
     Active Substance: CAPTOPRIL
  5. METFORMIN [Concomitant]
     Active Substance: METFORMIN HYDROCHLORIDE
  6. MORPHINE [Concomitant]
     Active Substance: MORPHINE
  7. ELECTRONIC CIGARETTE (NICOTINE) [Concomitant]

REACTIONS (4)
  - Road traffic accident [Recovering/Resolving]
  - Traumatic lung injury [Recovered/Resolved]
  - Dyspnoea [Not Recovered/Not Resolved]
  - Drug ineffective [Not Recovered/Not Resolved]

NARRATIVE: CASE EVENT DATE: 201403
